FAERS Safety Report 19361281 (Version 2)
Quarter: 2021Q2

REPORT INFORMATION
  Report Type: Spontaneous
  Country: JP (occurrence: JP)
  Receive Date: 20210603
  Receipt Date: 20210623
  Transmission Date: 20210717
  Serious: Yes (Hospitalization)
  Sender: FDA-Public Use
  Company Number: JP-AMGEN-JPNSP2021081718

PATIENT
  Age: 60 Year
  Sex: Female

DRUGS (1)
  1. APREMILAST [Suspect]
     Active Substance: APREMILAST
     Indication: PSORIASIS
     Dosage: UNK
     Route: 065
     Dates: start: 2021, end: 2021

REACTIONS (9)
  - Rash [Recovering/Resolving]
  - Tongue atrophy [Unknown]
  - Erythema [Unknown]
  - Malnutrition [Unknown]
  - Angular cheilitis [Unknown]
  - Decreased appetite [Unknown]
  - Diarrhoea [Unknown]
  - Alopecia [Unknown]
  - Psoriasis [Recovering/Resolving]

NARRATIVE: CASE EVENT DATE: 2021
